FAERS Safety Report 6470555-4 (Version None)
Quarter: 2009Q4

REPORT INFORMATION
  Report Type: 
  Country: None (occurrence: None)
  Receive Date: 20091203
  Receipt Date: 20091125
  Transmission Date: 20100525
  Serious: Yes (Other)
  Sender: FDA-Public Use
  Company Number: GB-PFIZER INC-2009297231

PATIENT
  Age: 63 Year
  Sex: Male
  Weight: 71 kg

DRUGS (12)
  1. SUNITINIB MALATE [Suspect]
     Indication: METASTATIC RENAL CELL CARCINOMA
     Dosage: 50 MG, 1X/DAY
     Route: 048
     Dates: start: 20060330, end: 20060607
  2. SUNITINIB MALATE [Suspect]
     Dosage: 37.5 MG, UNK
     Route: 048
     Dates: start: 20060622
  3. DRAPOLENE [Concomitant]
     Dosage: UNK
     Route: 061
     Dates: start: 20071213
  4. GELCLAIR [Concomitant]
     Dosage: UNK
     Route: 048
     Dates: start: 20071210
  5. AMLODIPINE [Concomitant]
     Dosage: UNK
     Route: 048
     Dates: start: 20080101
  6. DOXAZOSIN [Concomitant]
     Dosage: UNK
     Route: 048
     Dates: start: 20080828
  7. ANUGESIC [Concomitant]
     Dosage: UNK
     Route: 061
     Dates: start: 20080515
  8. LIDOCAINE [Concomitant]
     Dosage: UNK
     Route: 061
     Dates: start: 20080110
  9. COLPERMIN [Concomitant]
     Dosage: UNK
     Route: 048
     Dates: start: 20070409
  10. LEVOTHYROXINE SODIUM [Concomitant]
     Dosage: UNK
     Route: 048
     Dates: start: 20070613
  11. IMODIUM [Concomitant]
     Dosage: UNK
     Route: 048
     Dates: start: 20070923
  12. ATENOLOL [Concomitant]
     Dosage: UNK
     Route: 048
     Dates: start: 20030101

REACTIONS (1)
  - CHEST PAIN [None]
